FAERS Safety Report 11010574 (Version 1)
Quarter: 2015Q2

REPORT INFORMATION
  Report Type: Spontaneous
  Country: US (occurrence: None)
  Receive Date: 20150409
  Receipt Date: 20150409
  Transmission Date: 20150821
  Serious: Yes (Other)
  Sender: FDA-Public Use
  Company Number: None

PATIENT
  Age: 57 Year
  Sex: Female
  Weight: 54.43 kg

DRUGS (5)
  1. LORAZEPAM. [Concomitant]
     Active Substance: LORAZEPAM
  2. B VITAMIN [Concomitant]
  3. KEPPRA [Suspect]
     Active Substance: LEVETIRACETAM
     Indication: EPILEPSY
     Route: 048
  4. KEPPRA [Concomitant]
     Active Substance: LEVETIRACETAM
  5. C VITAMIN [Concomitant]

REACTIONS (2)
  - Hair colour changes [None]
  - Reaction to drug excipients [None]

NARRATIVE: CASE EVENT DATE: 20150408
